FAERS Safety Report 5057278-3 (Version None)
Quarter: 2006Q3

REPORT INFORMATION
  Report Type: 
  Country: None (occurrence: None)
  Receive Date: 20060721
  Receipt Date: 20050715
  Transmission Date: 20061208
  Serious: No
  Sender: FDA-Public Use
  Company Number: US-GLAXOSMITHKLINE-A0566463A

PATIENT
  Age: 47 Year
  Sex: Female

DRUGS (6)
  1. AVANDIA [Suspect]
     Route: 048
  2. METFORMIN [Suspect]
     Route: 048
  3. ZETIA [Concomitant]
  4. NEXIUM [Concomitant]
  5. LESCOL [Concomitant]
  6. AVANDAMET [Concomitant]

REACTIONS (3)
  - ARTHRALGIA [None]
  - GLYCOSYLATED HAEMOGLOBIN INCREASED [None]
  - JOINT SWELLING [None]
